FAERS Safety Report 6270464-X (Version None)
Quarter: 2009Q3

REPORT INFORMATION
  Report Type: 
  Country: None (occurrence: None)
  Receive Date: 20090716
  Receipt Date: 20090708
  Transmission Date: 20100115
  Serious: Yes (Other)
  Sender: FDA-Public Use
  Company Number: JP-AVENTIS-200911924JP

PATIENT
  Age: 44 Year
  Sex: Male
  Weight: 77 kg

DRUGS (6)
  1. TAXOTERE [Suspect]
     Route: 041
     Dates: start: 20090529, end: 20090529
  2. OXYCONTIN [Concomitant]
     Route: 048
  3. PRELON                             /00016201/ [Concomitant]
     Route: 048
  4. GASTER D [Concomitant]
     Route: 048
  5. SODIUM CHLORIDE 0.9% [Concomitant]
  6. PREDNISOLONE [Concomitant]
     Route: 041
     Dates: start: 20090529, end: 20090529

REACTIONS (2)
  - DYSPNOEA [None]
  - HYPOXIA [None]
